FAERS Safety Report 7403932-5 (Version None)
Quarter: 2011Q2

REPORT INFORMATION
  Report Type: 
  Country: None (occurrence: None)
  Receive Date: 20110408
  Receipt Date: 20110316
  Transmission Date: 20111010
  Serious: No
  Sender: FDA-Public Use
  Company Number: US-B.I. PHARMACEUTICALS,INC./RIDGEFIELD-2010-BP-14471BP

PATIENT
  Sex: Male

DRUGS (7)
  1. PRADAXA [Suspect]
     Indication: ATRIAL FIBRILLATION
     Dosage: 300 MG
     Route: 048
     Dates: start: 20101110
  2. NIASPAN [Concomitant]
     Indication: BLOOD CHOLESTEROL INCREASED
     Dosage: 1000 MG
     Dates: start: 20020101
  3. ASPIRIN [Concomitant]
     Indication: CARDIAC DISORDER
     Dosage: 81 MG
     Dates: start: 20050101
  4. SIMVASTATIN [Concomitant]
     Indication: BLOOD CHOLESTEROL INCREASED
     Dosage: 40 MG
     Dates: start: 20020101
  5. DIGOXIN [Concomitant]
     Indication: ATRIAL FIBRILLATION
     Dosage: 150 MG
     Dates: start: 20101103
  6. CARTIA XT [Concomitant]
     Indication: HYPERTENSION
     Dosage: 240 MG
     Dates: start: 20020101
  7. FLECAINIDE [Concomitant]
     Indication: ATRIAL FIBRILLATION
     Dosage: 200 MG
     Dates: start: 20050101

REACTIONS (4)
  - PAIN IN EXTREMITY [None]
  - HIGH DENSITY LIPOPROTEIN DECREASED [None]
  - DYSPEPSIA [None]
  - THYROID DISORDER [None]
